FAERS Safety Report 21301565 (Version 1)
Quarter: 2022Q3

REPORT INFORMATION
  Report Type: Spontaneous
  Country: NO (occurrence: NO)
  Receive Date: 20220907
  Receipt Date: 20220907
  Transmission Date: 20221027
  Serious: Yes (Other)
  Sender: FDA-Public Use
  Company Number: NO-MYLANLABS-2022M1091752

PATIENT
  Age: 67 Year
  Sex: Male

DRUGS (3)
  1. EPINEPHRINE [Suspect]
     Active Substance: EPINEPHRINE
     Indication: Anaesthesia
     Dosage: 5ML OF A 1:1 MIXTURE OF 2% XYLOCAINE CONTAINING EPINEPHRINE (1: 200000)
     Route: 056
  2. XYLOCAINE [Concomitant]
     Active Substance: LIDOCAINE HYDROCHLORIDE
     Indication: Anaesthesia
     Dosage: 5ML OF 1:1 MIXTURE OF 2% XYLOCAINE CONTAINING EPINEPHRINE (1: 200000)
     Route: 056
  3. BUPIVACAINE [Concomitant]
     Active Substance: BUPIVACAINE
     Indication: Anaesthesia
     Dosage: 5 MG/ML
     Route: 056

REACTIONS (1)
  - Retinal artery occlusion [Unknown]
